FAERS Safety Report 19636847 (Version 1)
Quarter: 2021Q3

REPORT INFORMATION
  Report Type: Spontaneous
  Country: NL (occurrence: NL)
  Receive Date: 20210730
  Receipt Date: 20210730
  Transmission Date: 20211014
  Serious: Yes (Death)
  Sender: FDA-Public Use
  Company Number: NL-ACCORD-233649

PATIENT
  Age: 69 Year
  Sex: Female
  Weight: 51 kg

DRUGS (4)
  1. FRAXIPARINE [Concomitant]
     Active Substance: NADROPARIN CALCIUM
     Dosage: INJECTION FLUID, 9500 IU/ML
  2. CISPLATIN. [Suspect]
     Active Substance: CISPLATIN
     Indication: OVARIAN CANCER
     Dosage: 150 MG FLUSHED INTRAPERITONEALLY
     Dates: start: 20210609, end: 20210609
  3. PFIZER?BIONTECH COVID?19 VACCINE [Suspect]
     Active Substance: TOZINAMERAN
     Indication: COVID-19 IMMUNISATION
     Dates: start: 20210528
  4. SODIUM THIOSULFATE [Concomitant]
     Active Substance: SODIUM THIOSULFATE
     Dosage: 18 GRAMS, IV DURING HIPEC PROCEDURE

REACTIONS (3)
  - Leukopenia [Fatal]
  - Dyspnoea [Fatal]
  - Thrombocytopenia [Fatal]

NARRATIVE: CASE EVENT DATE: 20210611
